FAERS Safety Report 20172326 (Version 1)
Quarter: 2021Q4

REPORT INFORMATION
  Report Type: Spontaneous
  Country: US (occurrence: US)
  Receive Date: 20211210
  Receipt Date: 20211210
  Transmission Date: 20220304
  Serious: No
  Sender: FDA-Public Use
  Company Number: US-KALA PHARAMACEUTICALS-2021KLA00096

PATIENT
  Age: 39 Year
  Sex: Male
  Weight: 77.098 kg

DRUGS (3)
  1. INVELTYS [Suspect]
     Active Substance: LOTEPREDNOL ETABONATE
     Indication: Post procedural inflammation
     Dosage: 1 DROP, 2X/DAY IN EACH EYE
     Route: 047
     Dates: start: 20210830, end: 20210913
  2. UNSPECIFIED OTHER EYE DROP [Concomitant]
     Dosage: UNK, EVERY 4 HOURS
  3. REFRESH OTC [Concomitant]
     Dosage: UNK, AS NEEDED

REACTIONS (3)
  - Instillation site pain [Recovered/Resolved]
  - Product use complaint [Recovered/Resolved]
  - Product container issue [Recovered/Resolved]

NARRATIVE: CASE EVENT DATE: 20210911
